FAERS Safety Report 7166402-8 (Version None)
Quarter: 2010Q4

REPORT INFORMATION
  Report Type: 
  Country: None (occurrence: None)
  Receive Date: 20101216
  Receipt Date: 20101111
  Transmission Date: 20110411
  Serious: No
  Sender: FDA-Public Use
  Company Number: US-ABBOTT-10P-163-0685344-00

PATIENT
  Age: 70 Year
  Sex: Male

DRUGS (1)
  1. TRILIPIX [Suspect]
     Indication: BLOOD CHOLESTEROL INCREASED
     Dates: start: 20100201, end: 20100517

REACTIONS (3)
  - GRANULOCYTOPENIA [None]
  - PLATELET COUNT DECREASED [None]
  - PROTEIN URINE PRESENT [None]
